FAERS Safety Report 13162038 (Version 1)
Quarter: 2017Q1

REPORT INFORMATION
  Report Type: Spontaneous
  Country: US (occurrence: US)
  Receive Date: 20170130
  Receipt Date: 20170130
  Transmission Date: 20170428
  Serious: No
  Sender: FDA-Public Use
  Company Number: US-PFIZER INC-2017033562

PATIENT
  Age: 71 Year
  Sex: Female

DRUGS (1)
  1. ZOLOFT [Suspect]
     Active Substance: SERTRALINE HYDROCHLORIDE
     Dosage: UNK

REACTIONS (21)
  - Diarrhoea [Unknown]
  - Hyperhidrosis [Unknown]
  - Decreased appetite [Unknown]
  - Nervousness [Unknown]
  - Dry eye [Unknown]
  - Thirst [Unknown]
  - Cold sweat [Unknown]
  - Arthralgia [Unknown]
  - Nausea [Unknown]
  - Heart rate increased [Unknown]
  - Dizziness [Unknown]
  - Back pain [Unknown]
  - Dyspnoea [Unknown]
  - Dry mouth [Unknown]
  - Nasal dryness [Unknown]
  - Cough [Unknown]
  - Fatigue [Unknown]
  - Headache [Unknown]
  - Photophobia [Unknown]
  - Drug hypersensitivity [Unknown]
  - Dysgeusia [Unknown]
